FAERS Safety Report 18296868 (Version 4)
Quarter: 2020Q4

REPORT INFORMATION
  Report Type: Spontaneous
  Country: FR (occurrence: FR)
  Receive Date: 20200922
  Receipt Date: 20201201
  Transmission Date: 20210113
  Serious: Yes (Other)
  Sender: FDA-Public Use
  Company Number: FR-JNJFOC-20200925590

PATIENT
  Age: 50 Year
  Sex: Female
  Weight: 140 kg

DRUGS (5)
  1. STELARA [Suspect]
     Active Substance: USTEKINUMAB
     Indication: CROHN^S DISEASE
     Route: 058
     Dates: start: 2018
  2. DOLIPRANE [Concomitant]
     Active Substance: ACETAMINOPHEN
     Dosage: OCCASIONALLY
  3. COUMADINE [Concomitant]
     Active Substance: WARFARIN SODIUM
     Indication: THROMBOSIS
  4. ZYMAD [Concomitant]
     Active Substance: CHOLECALCIFEROL
  5. VITAMIN B12 AMINO [Concomitant]
     Active Substance: CYANOCOBALAMIN

REACTIONS (1)
  - Non-alcoholic steatohepatitis [Unknown]
